FAERS Safety Report 5823215-4 (Version None)
Quarter: 2008Q3

REPORT INFORMATION
  Report Type: 
  Country: None (occurrence: None)
  Receive Date: 20080725
  Receipt Date: 20080716
  Transmission Date: 20090109
  Serious: Yes (Life-Threatening, Hospitalization)
  Sender: FDA-Public Use
  Company Number: AU-JNJFOC-20080500442

PATIENT
  Sex: Female
  Weight: 80 kg

DRUGS (8)
  1. RISPERDAL CONSTA [Suspect]
     Indication: DELUSIONAL DISORDER, UNSPECIFIED TYPE
     Route: 030
  2. RISPERDAL CONSTA [Suspect]
     Indication: SCHIZOPHRENIA
     Route: 030
  3. THYROXIN [Concomitant]
  4. SIMVASTATIN [Concomitant]
  5. COLOXYL [Concomitant]
  6. SENNA [Concomitant]
  7. IRBESARTAN [Concomitant]
  8. METOPROLOL TARTRATE [Concomitant]

REACTIONS (3)
  - ATRIOVENTRICULAR BLOCK [None]
  - DELUSION [None]
  - THERAPEUTIC RESPONSE DECREASED [None]
